FAERS Safety Report 23247191 (Version 1)
Quarter: 2023Q4

REPORT INFORMATION
  Report Type: Spontaneous
  Country: CA (occurrence: CA)
  Receive Date: 20231130
  Receipt Date: 20231130
  Transmission Date: 20240109
  Serious: Yes (Death)
  Sender: FDA-Public Use
  Company Number: CA-e5PHARMA-2023-CA-003808

PATIENT
  Age: 88 Year
  Sex: Male

DRUGS (1)
  1. DIAZOXIDE [Suspect]
     Active Substance: DIAZOXIDE
     Indication: Hypoglycaemia
     Dosage: 100 MG
     Route: 065

REACTIONS (2)
  - Hypervolaemia [Fatal]
  - Acute kidney injury [Fatal]
